FAERS Safety Report 9956199 (Version 1)
Quarter: 2014Q1

REPORT INFORMATION
  Report Type: Report from Study
  Country: US (occurrence: US)
  Receive Date: 20140304
  Receipt Date: 20140304
  Transmission Date: 20141002
  Serious: No
  Sender: FDA-Public Use
  Company Number: US-ABBVIE-13P-163-1089320-00

PATIENT
  Age: 64 Year
  Sex: Female

DRUGS (6)
  1. HUMIRA [Suspect]
     Indication: COLITIS ULCERATIVE
     Dates: start: 20130208
  2. BUPROPION [Concomitant]
     Indication: DEPRESSION
  3. NEXIUM [Concomitant]
     Indication: GASTROOESOPHAGEAL REFLUX DISEASE
  4. HYDROCHLOROTHIAZIDE [Concomitant]
     Indication: RENAL LITHIASIS PROPHYLAXIS
  5. ESTRIOL [Concomitant]
     Indication: OESTROGEN REPLACEMENT THERAPY
     Dosage: 1 DAILY
  6. HYOMYCINE [Concomitant]
     Indication: GASTROINTESTINAL DISORDER

REACTIONS (4)
  - Weight increased [Recovering/Resolving]
  - Abdominal pain upper [Not Recovered/Not Resolved]
  - Anaemia [Unknown]
  - Injection site pain [Unknown]
